FAERS Safety Report 18340602 (Version 1)
Quarter: 2020Q4

REPORT INFORMATION
  Report Type: Report from Study
  Country: US (occurrence: US)
  Receive Date: 20201002
  Receipt Date: 20201002
  Transmission Date: 20210113
  Serious: Yes (Hospitalization)
  Sender: FDA-Public Use
  Company Number: US-SEATTLE GENETICS-2020SGN04422

PATIENT
  Age: 25 Year
  Sex: Male
  Weight: 96 kg

DRUGS (5)
  1. BRENTUXIMAB VEDOTIN [Suspect]
     Active Substance: BRENTUXIMAB VEDOTIN
     Indication: LYMPHOMA
     Dosage: 1.8 MG/KG, Q3WEEKS
     Route: 042
     Dates: start: 20190418, end: 20200410
  2. PREDNISONE. [Concomitant]
     Active Substance: PREDNISONE
     Indication: LYMPHOMA
     Dosage: 100 MG, QCYCLE
     Route: 048
  3. CYCLOPHOSPHAMIDE. [Concomitant]
     Active Substance: CYCLOPHOSPHAMIDE
     Indication: LYMPHOMA
     Dosage: 750 MG/M2, Q3WEEKS
     Route: 042
  4. DOXORUBICIN [Concomitant]
     Active Substance: DOXORUBICIN
     Indication: LYMPHOMA
     Dosage: 50 MG/M2, Q3WEEKS
     Route: 042
  5. ETOPOSIDE. [Concomitant]
     Active Substance: ETOPOSIDE
     Indication: LYMPHOMA
     Dosage: 100 MG/M2, QCYCLE
     Route: 042

REACTIONS (1)
  - Myopathy [Unknown]

NARRATIVE: CASE EVENT DATE: 20200522
